FAERS Safety Report 7732226-3 (Version None)
Quarter: 2011Q3

REPORT INFORMATION
  Report Type: 
  Country: None (occurrence: None)
  Receive Date: 20110906
  Receipt Date: 20110817
  Transmission Date: 20111222
  Serious: No
  Sender: FDA-Public Use
  Company Number: US-AMGEN-USASP2011041807

PATIENT
  Age: 79 Year
  Sex: Female

DRUGS (4)
  1. KEPPRA [Concomitant]
     Dosage: UNK
  2. LOTENSIN                           /00498401/ [Concomitant]
     Dosage: UNK
  3. VITAMIN D [Concomitant]
     Dosage: UNK
  4. PROLIA [Suspect]
     Indication: OSTEOPOROSIS POSTMENOPAUSAL
     Dosage: UNK UNK, Q6MO
     Dates: start: 20101201, end: 20110801

REACTIONS (6)
  - ARTHRALGIA [None]
  - POLLAKIURIA [None]
  - JOINT STIFFNESS [None]
  - URINARY TRACT INFECTION [None]
  - JOINT WARMTH [None]
  - FEELING COLD [None]
